FAERS Safety Report 6626281-1 (Version None)
Quarter: 2010Q1

REPORT INFORMATION
  Report Type: 
  Country: None (occurrence: None)
  Receive Date: 20100310
  Receipt Date: 20090424
  Transmission Date: 20100710
  Serious: No
  Sender: FDA-Public Use
  Company Number: US-ABBOTT-08P-163-0463530-00

PATIENT
  Sex: Female
  Weight: 60.836 kg

DRUGS (2)
  1. LUPRON DEPOT [Suspect]
     Indication: UTERINE LEIOMYOMA
     Route: 030
     Dates: start: 20080601
  2. FERROUS SULFATE TAB [Concomitant]
     Indication: ANAEMIA
     Dosage: EVERY DAY
     Route: 048
     Dates: start: 20071201

REACTIONS (2)
  - ALOPECIA [None]
  - HOT FLUSH [None]
